FAERS Safety Report 5218964-5 (Version None)
Quarter: 2007Q1

REPORT INFORMATION
  Report Type: 
  Country: None (occurrence: None)
  Receive Date: 20070123
  Receipt Date: 20060814
  Transmission Date: 20070707
  Serious: Yes (Hospitalization, Other)
  Sender: FDA-Public Use
  Company Number: 2006099948

PATIENT
  Age: 21 Year
  Sex: Male

DRUGS (4)
  1. ZYRTEC [Suspect]
     Indication: MULTIPLE ALLERGIES
     Dosage: (10 MG), ORAL
     Route: 048
  2. ZYPREXA [Suspect]
     Indication: DRUG USE FOR UNKNOWN INDICATION
     Dosage: (10 MG), ORAL
     Route: 048
     Dates: start: 20051101
  3. CATAPRES-TTS-1 [Concomitant]
  4. ATENOLOL [Concomitant]

REACTIONS (11)
  - ABNORMAL BEHAVIOUR [None]
  - CONVULSION [None]
  - DRUG DISPENSING ERROR [None]
  - FAECAL INCONTINENCE [None]
  - FALL [None]
  - HEART RATE IRREGULAR [None]
  - HYPOTENSION [None]
  - REGRESSIVE BEHAVIOUR [None]
  - SOMNOLENCE [None]
  - URINARY INCONTINENCE [None]
  - WRONG DRUG ADMINISTERED [None]
